FAERS Safety Report 8784176 (Version 1)
Quarter: 2012Q4

REPORT INFORMATION
  Report Type: Spontaneous
  Country: US (occurrence: None)
  Receive Date: 20120830
  Receipt Date: 20120830
  Transmission Date: 20130627
  Serious: Yes (Hospitalization)
  Sender: FDA-Public Use
  Company Number: 20120520

PATIENT
  Age: 32 Year
  Sex: Male

DRUGS (3)
  1. DEXAMETHASONE SODIUM PHOSPHATES [Suspect]
  2. BEVACIZUMAB [Suspect]
  3. ETOPOSIDE [Concomitant]

REACTIONS (2)
  - Skin ulcer [None]
  - Skin striae [None]
